FAERS Safety Report 19979023 (Version 1)
Quarter: 2021Q4

REPORT INFORMATION
  Report Type: Spontaneous
  Country: US (occurrence: US)
  Receive Date: 20211020
  Receipt Date: 20211020
  Transmission Date: 20220303
  Serious: No
  Sender: FDA-Public Use
  Company Number: None

PATIENT
  Age: 69 Year
  Sex: Female

DRUGS (3)
  1. ERIVEDGE [Suspect]
     Active Substance: VISMODEGIB
     Indication: Basal cell carcinoma
     Route: 048
     Dates: start: 202007
  2. ERIVEDGE [Suspect]
     Active Substance: VISMODEGIB
     Indication: Multiple congenital abnormalities
  3. ERIVEDGE [Suspect]
     Active Substance: VISMODEGIB
     Indication: Multiple congenital abnormalities

REACTIONS (5)
  - Diarrhoea [None]
  - Vomiting [None]
  - Influenza [None]
  - Food poisoning [None]
  - Therapy interrupted [None]
